FAERS Safety Report 11840751 (Version 2)
Quarter: 2016Q1

REPORT INFORMATION
  Report Type: Spontaneous
  Country: CA (occurrence: CA)
  Receive Date: 20151216
  Receipt Date: 20160125
  Transmission Date: 20160525
  Serious: No
  Sender: FDA-Public Use
  Company Number: CA-BAXTER-2015BAX066810

PATIENT
  Age: 21 Hour
  Sex: Male
  Weight: 3.75 kg

DRUGS (2)
  1. DEXTROSE 10% INJECTION 10 MG [Suspect]
     Active Substance: DEXTROSE
     Indication: NUTRITIONAL SUPPLEMENTATION
     Route: 042
     Dates: start: 20151203, end: 20151204
  2. PRIMENE 10% [Suspect]
     Active Substance: AMINO ACIDS
     Indication: NUTRITIONAL SUPPLEMENTATION
     Route: 042
     Dates: start: 20151203, end: 20151204

REACTIONS (1)
  - Rash pustular [Unknown]

NARRATIVE: CASE EVENT DATE: 20151203
